FAERS Safety Report 25854840 (Version 3)
Quarter: 2025Q4

REPORT INFORMATION
  Report Type: Report from Study
  Country: RU (occurrence: RU)
  Receive Date: 20250927
  Receipt Date: 20251111
  Transmission Date: 20260118
  Serious: Yes (Death, Hospitalization, Other)
  Sender: SANOFI AVENTIS
  Company Number: RU-SA-2025SA019097

PATIENT
  Age: 53 Year
  Sex: Male
  Weight: 68 kg

DRUGS (2)
  1. ALEMTUZUMAB [Suspect]
     Active Substance: ALEMTUZUMAB
     Indication: Multiple sclerosis
     Dosage: 5 DOSES
     Route: 042
     Dates: start: 202305, end: 2023
  2. ALEMTUZUMAB [Suspect]
     Active Substance: ALEMTUZUMAB
     Dosage: 3 DOSES
     Route: 042
     Dates: start: 202408, end: 202408

REACTIONS (6)
  - Platelet count decreased [Not Recovered/Not Resolved]
  - Blood test abnormal [Recovering/Resolving]
  - Movement disorder [Recovering/Resolving]
  - Scratch [Unknown]
  - Haemorrhage [Recovered/Resolved]
  - Death [Fatal]

NARRATIVE: CASE EVENT DATE: 20250828
